FAERS Safety Report 23546211 (Version 1)
Quarter: 2024Q1

REPORT INFORMATION
  Report Type: Spontaneous
  Country: NL (occurrence: NL)
  Receive Date: 20240220
  Receipt Date: 20240220
  Transmission Date: 20240410
  Serious: Yes (Hospitalization)
  Sender: FDA-Public Use
  Company Number: None

PATIENT
  Age: 62 Year
  Sex: Male

DRUGS (8)
  1. PREDNISOLONE [Suspect]
     Active Substance: PREDNISOLONE
     Indication: Polymyalgia rheumatica
     Dosage: PREDNISOLONE TABLET 5MG / PREDNISOLONE RP TABLET 5MG
     Route: 065
     Dates: start: 2021
  2. LISINOPRIL [Concomitant]
     Active Substance: LISINOPRIL
     Indication: Product used for unknown indication
     Dosage: LISINOPRIL TABLET 10MG / LISINOPRIL TEVA TABLET 10MG
     Route: 065
  3. RIVAROXABAN [Concomitant]
     Active Substance: RIVAROXABAN
     Indication: Product used for unknown indication
     Dosage: RIVAROXABAN TABLET 20MG / XARELTO TABLET FILM COVER 20MG
     Route: 065
  4. ALENDRONIC ACID [Concomitant]
     Active Substance: ALENDRONIC ACID
     Indication: Product used for unknown indication
     Dosage: ALENDRONIC ACID TABLET 70MG / ALENDRONIC ACID AUROBINDO TABLET 70MG
     Route: 065
  5. METHYLPREDNISOLONE [Suspect]
     Active Substance: METHYLPREDNISOLONE
     Indication: Polymyalgia rheumatica
     Dosage: METHYLPREDNISOLONE INJVLST 40MG/ML (ACETATE) / DEPO MEDROL INJVLST 40MG/ML VIAL 5ML
     Route: 065
     Dates: start: 2021
  6. ATORVASTATIN [Concomitant]
     Active Substance: ATORVASTATIN
     Indication: Product used for unknown indication
     Dosage: ATORVASTATIN TABLET 10MG / ATORVASTATIN MYLAN TABLET FILM COVER 10MG
     Route: 065
  7. INFLUENZA VIRUS VACCINE [Concomitant]
     Active Substance: INFLUENZA VIRUS VACCINE
     Indication: Product used for unknown indication
     Dosage: INFLUENZA VACCINE (NOT SPECIFIED) / BRAND NAME NOT SPECIFIED
     Route: 065
  8. TACAL D3 [Concomitant]
     Indication: Product used for unknown indication
     Dosage: CALCIUM CARB/COLECALC CHEWABLE TB 1.25G/800IU (500MG CA) / TACAL D3 CHEWABLE TABLET 500MG/800IU O...
     Route: 065

REACTIONS (1)
  - Intestinal perforation [Unknown]

NARRATIVE: CASE EVENT DATE: 20231117
